FAERS Safety Report 16970436 (Version 1)
Quarter: 2019Q4

REPORT INFORMATION
  Report Type: Spontaneous
  Country: US (occurrence: US)
  Receive Date: 20191028
  Receipt Date: 20191028
  Transmission Date: 20200122
  Serious: Yes (Disabling)
  Sender: FDA-Public Use
  Company Number: None

PATIENT
  Age: 39 Year
  Sex: Female
  Weight: 80.55 kg

DRUGS (1)
  1. BRIVIACT [Suspect]
     Active Substance: BRIVARACETAM
     Indication: EPILEPSY
     Dosage: ?          QUANTITY:1 TABLET(S);?

REACTIONS (9)
  - Insomnia [None]
  - Muscle injury [None]
  - Crying [None]
  - Fatigue [None]
  - Pain [None]
  - Skin mass [None]
  - Depression [None]
  - Hormone level abnormal [None]
  - Neurotoxicity [None]

NARRATIVE: CASE EVENT DATE: 20191028
